FAERS Safety Report 9429090 (Version 1)
Quarter: 2013Q3

REPORT INFORMATION
  Report Type: Spontaneous
  Country: US (occurrence: US)
  Receive Date: 20130730
  Receipt Date: 20130730
  Transmission Date: 20140515
  Serious: No
  Sender: FDA-Public Use
  Company Number: US-ABBOTT-12P-163-1010720-00

PATIENT
  Age: 67 Year
  Sex: Female
  Weight: 47.67 kg

DRUGS (7)
  1. NIASPAN (COATED) [Suspect]
     Indication: BLOOD CHOLESTEROL INCREASED
     Dates: start: 20121118, end: 20121118
  2. ARBOR THYROID [Concomitant]
     Indication: SJOGREN^S SYNDROME
  3. FLUDROCORTISONE [Concomitant]
     Indication: HYPOTENSION
  4. MORPHINE [Concomitant]
     Indication: PAIN
  5. 7-KETODHEA 20 TEST [Concomitant]
     Indication: INSOMNIA
     Dosage: 8MG/4CL
  6. 7-KETODHEA 20 TEST [Concomitant]
     Indication: PAIN
  7. ONDANSETRON [Concomitant]
     Indication: NAUSEA

REACTIONS (4)
  - Orthostatic hypotension [Recovered/Resolved]
  - Flushing [Recovered/Resolved]
  - Feeling hot [Recovered/Resolved]
  - Palpitations [Recovered/Resolved]
